FAERS Safety Report 17197080 (Version 1)
Quarter: 2019Q4

REPORT INFORMATION
  Report Type: Spontaneous
  Country: US (occurrence: US)
  Receive Date: 20191224
  Receipt Date: 20191224
  Transmission Date: 20200122
  Serious: No
  Sender: FDA-Public Use
  Company Number: US-SA-2019SA355383

PATIENT
  Age: 74 Year
  Sex: Male

DRUGS (2)
  1. PRALUENT [Suspect]
     Active Substance: ALIROCUMAB
     Indication: BLOOD CHOLESTEROL INCREASED
     Dosage: 150 MG, QOW
     Dates: start: 201911
  2. BRILINTA [Concomitant]
     Active Substance: TICAGRELOR

REACTIONS (3)
  - Heart rate abnormal [Unknown]
  - Dyspnoea [Unknown]
  - Chest discomfort [Unknown]
